FAERS Safety Report 5477093-6 (Version None)
Quarter: 2007Q4

REPORT INFORMATION
  Report Type: 
  Country: None (occurrence: None)
  Receive Date: 20071003
  Receipt Date: 20071003
  Transmission Date: 20080405
  Serious: Yes (Hospitalization)
  Sender: FDA-Public Use
  Company Number: None

PATIENT
  Sex: Female

DRUGS (3)
  1. REVLIMID [Suspect]
     Indication: MULTIPLE MYELOMA
     Dosage: 25MG  DAILY 21D/28D  PO
     Route: 048
  2. DEXAMETHASONE 0.5MG TAB [Concomitant]
  3. AREDIA [Concomitant]

REACTIONS (5)
  - DIARRHOEA [None]
  - FUNGAL INFECTION [None]
  - SEPTIC SHOCK [None]
  - SPUTUM CULTURE POSITIVE [None]
  - VIRAL INFECTION [None]
